FAERS Safety Report 7543027-3 (Version None)
Quarter: 2011Q2

REPORT INFORMATION
  Report Type: 
  Country: None (occurrence: None)
  Receive Date: 20110524
  Receipt Date: 20110207
  Transmission Date: 20111010
  Serious: No
  Sender: FDA-Public Use
  Company Number: 020165

PATIENT
  Sex: Male

DRUGS (1)
  1. CIMZIA [Suspect]
     Indication: CROHN'S DISEASE
     Dosage: (SUBCUTANEOUS), (400 MG 1X.MONTH SUBCUTANEOUS)
     Route: 058
     Dates: start: 20081009

REACTIONS (7)
  - FEELING ABNORMAL [None]
  - FREQUENT BOWEL MOVEMENTS [None]
  - DRUG INEFFECTIVE [None]
  - BLOOD PRESSURE INCREASED [None]
  - CROHN'S DISEASE [None]
  - CHILLS [None]
  - PYREXIA [None]
